FAERS Safety Report 4287990-5 (Version None)
Quarter: 2004Q1

REPORT INFORMATION
  Report Type: 
  Country: None (occurrence: None)
  Receive Date: 20040209
  Receipt Date: 20031110
  Transmission Date: 20041129
  Serious: No
  Sender: FDA-Public Use
  Company Number: US-GLAXOSMITHKLINE-A0439058A

PATIENT
  Age: 30 Year
  Sex: Female

DRUGS (2)
  1. PAXIL [Suspect]
     Dosage: 12.5MG PER DAY
     Route: 048
     Dates: start: 20031020
  2. TYLENOL (CAPLET) [Concomitant]

REACTIONS (9)
  - EYE SWELLING [None]
  - HEADACHE [None]
  - RHINITIS [None]
  - SENSATION OF BLOCK IN EAR [None]
  - SKIN DISCOLOURATION [None]
  - SNEEZING [None]
  - SWELLING FACE [None]
  - TINNITUS [None]
  - WHEEZING [None]
